FAERS Safety Report 5820017-X (Version None)
Quarter: 2008Q3

REPORT INFORMATION
  Report Type: 
  Country: None (occurrence: None)
  Receive Date: 20080718
  Receipt Date: 20080718
  Transmission Date: 20090109
  Serious: Yes (Disabling)
  Sender: FDA-Public Use
  Company Number: None

PATIENT
  Sex: Female

DRUGS (1)
  1. AVELOX [Suspect]
     Indication: ANTIBIOTIC THERAPY
     Dosage: 400 MG IV
     Route: 042
     Dates: start: 20080110, end: 20080111

REACTIONS (2)
  - PRURITUS [None]
  - THROAT IRRITATION [None]
